FAERS Safety Report 4692848-3 (Version None)
Quarter: 2005Q2

REPORT INFORMATION
  Report Type: 
  Country: None (occurrence: None)
  Receive Date: 20050617
  Receipt Date: 20050610
  Transmission Date: 20051028
  Serious: Yes (Death)
  Sender: FDA-Public Use
  Company Number: 2005AC00860

PATIENT
  Age: 27 Year
  Sex: Male

DRUGS (2)
  1. QUETIAPINE FUMARATE [Suspect]
     Route: 048
  2. HALOPERIDOL [Concomitant]

REACTIONS (2)
  - ACCIDENTAL OVERDOSE [None]
  - DRUG TOXICITY [None]
